FAERS Safety Report 10038168 (Version 1)
Quarter: 2014Q1

REPORT INFORMATION
  Report Type: Spontaneous
  Country: US (occurrence: None)
  Receive Date: 20140325
  Receipt Date: 20140325
  Transmission Date: 20141002
  Serious: Yes (Life-Threatening, Hospitalization, Disabling, Other)
  Sender: FDA-Public Use
  Company Number: None

PATIENT
  Sex: Male
  Weight: 142.88 kg

DRUGS (1)
  1. LAMOTRIGINE 100MG [Suspect]
     Indication: EPILEPSY
     Route: 048

REACTIONS (1)
  - Drug ineffective [None]
